FAERS Safety Report 7080720-3 (Version None)
Quarter: 2010Q4

REPORT INFORMATION
  Report Type: 
  Country: None (occurrence: None)
  Receive Date: 20101103
  Receipt Date: 20101028
  Transmission Date: 20110411
  Serious: Yes (Hospitalization)
  Sender: FDA-Public Use
  Company Number: US-GILEAD-2010-0032329

PATIENT
  Sex: Female

DRUGS (16)
  1. LETAIRIS [Suspect]
     Indication: PULMONARY ARTERIAL HYPERTENSION
     Route: 048
     Dates: start: 20080214, end: 20101022
  2. COUMADIN [Concomitant]
  3. OXYGEN [Concomitant]
  4. LASIX [Concomitant]
  5. ATACAND [Concomitant]
  6. TOPROL-XL [Concomitant]
  7. LIPITOR [Concomitant]
  8. ADVAIR DISKUS 100/50 [Concomitant]
  9. NAMENDA [Concomitant]
  10. LEXAPRO [Concomitant]
  11. ARICEPT [Concomitant]
  12. FISH OIL [Concomitant]
  13. DAILY MULTIVITAMIN [Concomitant]
  14. CRANBERRY [Concomitant]
  15. CALCIUM [Concomitant]
  16. POTASSIUM CL [Concomitant]

REACTIONS (1)
  - PULMONARY EMBOLISM [None]
